FAERS Safety Report 8423521-3 (Version None)
Quarter: 2012Q2

REPORT INFORMATION
  Report Type: 
  Country: None (occurrence: None)
  Receive Date: 20120323
  Receipt Date: 20110217
  Transmission Date: 20120825
  Serious: Yes (Other)
  Sender: FDA-Public Use
  Company Number: 163-21880-11022394

PATIENT
  Age: 70 Year
  Sex: Male

DRUGS (3)
  1. REVLIMID [Suspect]
     Indication: MULTIPLE MYELOMA
     Dosage: 10 MG, DAILY X 28, PO ; 25 MG, 1 IN 1 D, PO ; 10 MG, DAILY X 28, PO
     Route: 048
     Dates: start: 20071210
  2. REVLIMID [Suspect]
     Indication: MULTIPLE MYELOMA
     Dosage: 10 MG, DAILY X 28, PO ; 25 MG, 1 IN 1 D, PO ; 10 MG, DAILY X 28, PO
     Route: 048
     Dates: start: 20090201
  3. REVLIMID [Suspect]
     Indication: MULTIPLE MYELOMA
     Dosage: 10 MG, DAILY X 28, PO ; 25 MG, 1 IN 1 D, PO ; 10 MG, DAILY X 28, PO
     Route: 048
     Dates: start: 20101201

REACTIONS (1)
  - DEEP VEIN THROMBOSIS [None]
